FAERS Safety Report 16236810 (Version 2)
Quarter: 2019Q2

REPORT INFORMATION
  Report Type: Report from Study
  Country: None (occurrence: US)
  Receive Date: 20190425
  Receipt Date: 20190618
  Transmission Date: 20190711
  Serious: No
  Sender: FDA-Public Use
  Company Number: US-ABBVIE-19S-163-2753847-00

PATIENT
  Age: 26 Year
  Sex: Male
  Weight: 64.01 kg

DRUGS (2)
  1. ANDROGEL [Suspect]
     Active Substance: TESTOSTERONE
     Indication: ANDROGEN DEFICIENCY
     Dosage: ANDROGEL PACKETS
     Route: 061
     Dates: start: 2015, end: 20190411
  2. ANDROGEL [Suspect]
     Active Substance: TESTOSTERONE
     Indication: ANDROGEN REPLACEMENT THERAPY
     Dosage: ANDROGEL PUMP
     Route: 061
     Dates: start: 20190412

REACTIONS (2)
  - Off label use [Not Recovered/Not Resolved]
  - Gender dysphoria [Recovering/Resolving]

NARRATIVE: CASE EVENT DATE: 2015
